FAERS Safety Report 19326528 (Version 5)
Quarter: 2025Q3

REPORT INFORMATION
  Report Type: Report from Study
  Country: US (occurrence: US)
  Receive Date: 20210528
  Receipt Date: 20250710
  Transmission Date: 20251020
  Serious: Yes (Other)
  Sender: JAZZ
  Company Number: US-GW PHARMA-202105USGW02542

PATIENT
  Sex: Male
  Weight: 180 kg

DRUGS (2)
  1. EPIDIOLEX [Suspect]
     Active Substance: CANNABIDIOL
     Indication: Seizure
     Dosage: 200 MILLIGRAM, QD (QHS, PRESCRIBED ONCE A DAY)
     Route: 048
  2. EPIDIOLEX [Suspect]
     Active Substance: CANNABIDIOL
     Dosage: 2 ML EVERY NIGHT AND 2 ML PRN FOR SEIZURE
     Route: 048
     Dates: start: 20221130

REACTIONS (5)
  - Dementia [Unknown]
  - Hallucination [Unknown]
  - Cardiac disorder [Unknown]
  - Insomnia [Unknown]
  - Off label use [Unknown]
